FAERS Safety Report 7380989-1 (Version None)
Quarter: 2011Q1

REPORT INFORMATION
  Report Type: 
  Country: None (occurrence: None)
  Receive Date: 20110329
  Receipt Date: 20110321
  Transmission Date: 20110831
  Serious: Yes (Disabling, Other)
  Sender: FDA-Public Use
  Company Number: US-TEVA-272495USA

PATIENT
  Age: 52 Year
  Sex: Male

DRUGS (2)
  1. PREDNISONE [Suspect]
     Route: 048
  2. METHYLPREDNISOLONE TABLET 4MG [Suspect]
     Route: 042

REACTIONS (3)
  - ARTERIOVENOUS FISTULA [None]
  - ASTHENIA [None]
  - PARAPLEGIA [None]
